FAERS Safety Report 10880451 (Version 1)
Quarter: 2015Q1

REPORT INFORMATION
  Report Type: Spontaneous
  Country: US (occurrence: US)
  Receive Date: 20150303
  Receipt Date: 20150303
  Transmission Date: 20150721
  Serious: No
  Sender: FDA-Public Use
  Company Number: US-ASTRAZENECA-2015SE16984

PATIENT
  Sex: Male

DRUGS (2)
  1. IV DYE [Concomitant]
  2. BRILINTA [Suspect]
     Active Substance: TICAGRELOR
     Route: 048
     Dates: start: 20150217

REACTIONS (2)
  - Rash erythematous [Unknown]
  - Flushing [Unknown]

NARRATIVE: CASE EVENT DATE: 20150217
